FAERS Safety Report 18235934 (Version 2)
Quarter: 2021Q3

REPORT INFORMATION
  Report Type: Spontaneous
  Country: US (occurrence: US)
  Receive Date: 20200905
  Receipt Date: 20210910
  Transmission Date: 20211014
  Serious: Yes (Other)
  Sender: FDA-Public Use
  Company Number: US-SA-2020SA239106

PATIENT
  Age: 75 Year
  Sex: Female

DRUGS (1)
  1. ZANTAC [Suspect]
     Active Substance: RANITIDINE HYDROCHLORIDE
     Indication: GASTROOESOPHAGEAL REFLUX DISEASE
     Dosage: 75 MG, QW
     Dates: start: 199801, end: 201910

REACTIONS (2)
  - Gastric cancer [Unknown]
  - Peritoneal mesothelioma malignant [Unknown]

NARRATIVE: CASE EVENT DATE: 20160401
